FAERS Safety Report 5330786-3 (Version None)
Quarter: 2007Q2

REPORT INFORMATION
  Report Type: 
  Country: None (occurrence: None)
  Receive Date: 20070522
  Receipt Date: 20070515
  Transmission Date: 20071010
  Serious: Yes (Hospitalization)
  Sender: FDA-Public Use
  Company Number: AU-JNJFOC-20070503589

PATIENT
  Age: 5 Year
  Sex: Female

DRUGS (14)
  1. ITRACONAZOLE [Suspect]
     Indication: DRUG USE FOR UNKNOWN INDICATION
     Route: 065
  2. MELPHALAN [Suspect]
     Indication: MYELOID LEUKAEMIA
     Route: 042
  3. FRUSEMIDE [Suspect]
     Indication: DRUG USE FOR UNKNOWN INDICATION
     Route: 065
  4. PREDNISOLONE [Suspect]
     Indication: DRUG USE FOR UNKNOWN INDICATION
     Route: 065
  5. CYCLOSPORINE [Suspect]
     Indication: DRUG USE FOR UNKNOWN INDICATION
     Route: 065
  6. ONDANSETRON HYDROCHLORIDE DIHYDRATE [Suspect]
     Indication: DRUG USE FOR UNKNOWN INDICATION
     Route: 065
  7. METRONIDAZOLE [Suspect]
     Indication: DRUG USE FOR UNKNOWN INDICATION
     Route: 065
  8. TRIMETHOPRIM + SULFAMETHOXAZOLE [Suspect]
     Indication: DRUG USE FOR UNKNOWN INDICATION
     Route: 065
  9. OMEPRAZOLE [Suspect]
     Indication: DRUG USE FOR UNKNOWN INDICATION
     Route: 065
  10. CLAVULANIC ACID [Concomitant]
     Route: 065
  11. NIFEDIPINE [Concomitant]
     Route: 065
  12. METOCLOPRAMIDE [Concomitant]
     Route: 065
  13. GENTAMICIN [Concomitant]
     Route: 065
  14. CEPHALOTHIN [Concomitant]
     Route: 065

REACTIONS (2)
  - ANAEMIA [None]
  - PANCREATITIS HAEMORRHAGIC [None]
